FAERS Safety Report 13196571 (Version 1)
Quarter: 2017Q1

REPORT INFORMATION
  Report Type: Spontaneous
  Country: US (occurrence: US)
  Receive Date: 20170208
  Receipt Date: 20170208
  Transmission Date: 20170428
  Serious: No
  Sender: FDA-Public Use
  Company Number: US-009507513-1702USA000359

PATIENT

DRUGS (1)
  1. CLARINEX [Suspect]
     Active Substance: DESLORATADINE
     Dosage: 1 TABLET / ^DAILY AS NEEDED^
     Route: 048

REACTIONS (4)
  - Inability to afford medication [Unknown]
  - Expired product administered [Unknown]
  - No adverse event [Unknown]
  - Drug dose omission [Unknown]
